FAERS Safety Report 9718298 (Version 1)
Quarter: 2013Q4

REPORT INFORMATION
  Report Type: Spontaneous
  Country: US (occurrence: US)
  Receive Date: 20131125
  Receipt Date: 20131125
  Transmission Date: 20140711
  Serious: No
  Sender: FDA-Public Use
  Company Number: US-VIVUS-2013V1000230

PATIENT
  Age: 53 Year
  Sex: Male

DRUGS (4)
  1. QSYMIA 3.75MG/23MG [Suspect]
     Indication: PRODUCT USED FOR UNKNOWN INDICATION
     Route: 048
     Dates: start: 20130322, end: 2013
  2. VYTORIN [Concomitant]
     Route: 048
  3. VIBRAN [Concomitant]
     Route: 048
  4. AVODART [Concomitant]
     Route: 048

REACTIONS (1)
  - Visual acuity reduced [Not Recovered/Not Resolved]
